FAERS Safety Report 9315436 (Version 1)
Quarter: 2013Q2

REPORT INFORMATION
  Report Type: Report from Study
  Country: US (occurrence: US)
  Receive Date: 20130529
  Receipt Date: 20130529
  Transmission Date: 20140414
  Serious: Yes (Hospitalization, Other)
  Sender: FDA-Public Use
  Company Number: US-ASTRAZENECA-2013SE10122

PATIENT
  Age: 64 Year
  Sex: Male
  Weight: 75.3 kg

DRUGS (24)
  1. CRESTOR [Suspect]
     Route: 048
  2. CRESTOR [Suspect]
     Route: 048
     Dates: start: 20130423
  3. LISINOPRIL [Suspect]
     Route: 048
     Dates: start: 20090903
  4. COUMADIN [Concomitant]
     Route: 048
     Dates: start: 20130311
  5. COUMADIN [Concomitant]
     Route: 048
     Dates: start: 20130408
  6. COUMADIN [Concomitant]
     Route: 048
     Dates: start: 20130408
  7. LEVOTHYROXINE [Concomitant]
     Route: 048
     Dates: start: 20130319
  8. PAMELOR [Concomitant]
     Route: 048
     Dates: start: 20130319
  9. BISACODYL [Concomitant]
     Indication: CONSTIPATION
     Route: 048
     Dates: start: 20130311
  10. REQUIP [Concomitant]
     Route: 048
     Dates: start: 20130225
  11. IPATROPIUM ALBUTEROL [Concomitant]
     Dosage: 0.5 MG-3 MG(2.5 MG BASE)/3 ML, NEB SOLUTION,INHALE 3 ML BY NEBULIZATION ROUTE 4 TIMES EVERY DAY
     Route: 055
     Dates: start: 20130219
  12. METOPROLOL TARTRATE [Concomitant]
     Route: 048
     Dates: start: 20130213
  13. FLUTICASONE [Concomitant]
     Dosage: 1 SPRAY EVERY DAY IN NOSTRIL
     Route: 045
     Dates: start: 20130213
  14. SPIRIVA [Concomitant]
     Route: 055
     Dates: start: 20130213
  15. SPIRIVA [Concomitant]
     Route: 055
     Dates: start: 20130213
  16. NORCO [Concomitant]
     Indication: PAIN
     Dosage: 5 MG TO 325 MG, 1 TABLET EVERY 6 HOURS AS NEEDED
     Route: 048
     Dates: start: 20130213
  17. RANITIDINE [Concomitant]
     Route: 048
     Dates: start: 20130114
  18. LACTULOSE [Concomitant]
     Dosage: 20 GM/30 ML, TAKING 15 ML EVERY DAY
     Route: 048
     Dates: start: 20121024
  19. TESTOSTERONE CYPIONATE [Concomitant]
     Dosage: 200 MG/ML, INJECT 1 ML, EVERY 2 WEEKS
     Route: 030
     Dates: start: 20121008
  20. EPIPEN [Concomitant]
     Indication: ANAPHYLACTIC REACTION
     Dosage: 0.3 MG/0.3 ML (1:1000), ONCE AS NEEDED
     Route: 030
     Dates: start: 20120626
  21. ASPIRIN [Concomitant]
     Route: 048
     Dates: start: 20120319
  22. PLAVIX [Concomitant]
     Route: 048
     Dates: start: 20090712
  23. VENTOLIN HFA [Concomitant]
     Dosage: 90 MCG, INHALE 2 PUFF EVERY 4 HOURS AS NEEDED
     Route: 055
     Dates: start: 20090903
  24. NITROQUICK [Concomitant]
     Indication: ANGINA PECTORIS
     Dosage: 1 TABLET AT THE FIRST SIGN OF ATTACK, MAY REPEAT EVERY 5 MIN UNTIL RELEIF
     Route: 060
     Dates: start: 20090903

REACTIONS (9)
  - Anaphylactic reaction [Unknown]
  - Cerebrovascular accident [Unknown]
  - Anaemia [Unknown]
  - Dyspnoea [Unknown]
  - Hemiparesis [Unknown]
  - Haemorrhage [Unknown]
  - Constipation [Unknown]
  - Hypoaesthesia [Unknown]
  - Pain [Unknown]
